FAERS Safety Report 7823659-5 (Version None)
Quarter: 2011Q4

REPORT INFORMATION
  Report Type: 
  Country: None (occurrence: None)
  Receive Date: 20111019
  Receipt Date: 20111019
  Transmission Date: 20120403
  Serious: Yes (Other)
  Sender: FDA-Public Use
  Company Number: None

PATIENT
  Age: 66 Year
  Sex: Female
  Weight: 86.182 kg

DRUGS (1)
  1. IBUPROFEN [Suspect]
     Indication: PAIN IN EXTREMITY
     Dosage: 1 OR 2 TABLETS
     Route: 048
     Dates: start: 20110910, end: 20111005

REACTIONS (5)
  - FEELING HOT [None]
  - HERPES ZOSTER [None]
  - DERMATITIS CONTACT [None]
  - ERYTHEMA [None]
  - FACIAL PAIN [None]
